FAERS Safety Report 10897564 (Version 1)
Quarter: 2015Q1

REPORT INFORMATION
  Report Type: Report from Study
  Country: CA (occurrence: CA)
  Receive Date: 20150309
  Receipt Date: 20150309
  Transmission Date: 20150721
  Serious: Yes (Hospitalization, Other)
  Sender: FDA-Public Use
  Company Number: CA-JNJFOC-20150220919

PATIENT
  Age: 51 Year
  Sex: Female

DRUGS (45)
  1. CITALOPRAM [Suspect]
     Active Substance: CITALOPRAM HYDROBROMIDE
     Indication: AFFECTIVE DISORDER
     Dosage: WITH FOOD IN MORNING. DOSE INCREASED TO 2 TABLETS DAILY
     Route: 065
  2. APO AMITRIPTYLINE [Concomitant]
     Active Substance: AMITRIPTYLINE
     Indication: PAIN PROPHYLAXIS
     Dosage: 3 TABLETS AT BEDTIME. WATCH FOR DRY MOUTH, CONSTIPATION OR BLURRED VISION.
     Route: 065
  3. VOLTAREN [Concomitant]
     Active Substance: DICLOFENAC SODIUM
     Indication: MYALGIA
     Dosage: MAXIMUM BENEFIT IF USED 3-4TIMES A DAY
     Route: 065
  4. REMICADE [Suspect]
     Active Substance: INFLIXIMAB
     Indication: CROHN^S DISEASE
     Route: 042
     Dates: start: 201408
  5. REMICADE [Suspect]
     Active Substance: INFLIXIMAB
     Indication: COLITIS ULCERATIVE
     Route: 042
     Dates: start: 20140909
  6. CITALOPRAM [Suspect]
     Active Substance: CITALOPRAM HYDROBROMIDE
     Indication: AFFECTIVE DISORDER
     Route: 065
  7. APO AMITRIPTYLINE [Concomitant]
     Active Substance: AMITRIPTYLINE
     Indication: SLEEP DISORDER THERAPY
     Dosage: 3 TABLETS AT BEDTIME. WATCH FOR DRY MOUTH, CONSTIPATION OR BLURRED VISION.
     Route: 065
  8. CIPRO [Concomitant]
     Active Substance: CIPROFLOXACIN HYDROCHLORIDE
     Dosage: 1 TABLET TWICE DAILY UNTIL FINISHED
     Route: 065
     Dates: start: 20140915, end: 20141015
  9. CALCIUM [Concomitant]
     Active Substance: CALCIUM
     Indication: BONE DISORDER
     Route: 065
  10. REMICADE [Suspect]
     Active Substance: INFLIXIMAB
     Indication: COLITIS ULCERATIVE
     Route: 042
     Dates: start: 20141007
  11. TARO-WARFARIN [Suspect]
     Active Substance: WARFARIN
     Indication: THROMBOSIS PROPHYLAXIS
     Dosage: TAKES AT 7 PM
     Route: 065
     Dates: start: 20140917, end: 201409
  12. CITALOPRAM [Suspect]
     Active Substance: CITALOPRAM HYDROBROMIDE
     Indication: NERVOUS SYSTEM DISORDER
     Route: 065
  13. APO-METRONIDAZOLE [Suspect]
     Active Substance: METRONIDAZOLE
     Indication: INFECTION
     Dosage: TAKE WITH FOOD. AVOID ALCOHOL WHILE ON THIS MEDICATION AND FOR 2 DAYS AFTER STOPPING MEDICATION.
     Route: 065
     Dates: start: 20140915, end: 20141014
  14. GRAVOL [Concomitant]
     Active Substance: DIMENHYDRINATE
     Indication: PREMEDICATION
     Route: 065
     Dates: start: 20150226
  15. VITAMIN D3 [Concomitant]
     Active Substance: CHOLECALCIFEROL
     Indication: BONE DISORDER
     Dosage: 2 TABS DAILY
     Route: 065
  16. GINGER. [Concomitant]
     Active Substance: GINGER
     Indication: NAUSEA
     Dosage: 1 DROPPERFUL DAILY
     Route: 065
  17. REMICADE [Suspect]
     Active Substance: INFLIXIMAB
     Indication: COLITIS ULCERATIVE
     Route: 042
     Dates: start: 201408
  18. TYLENOL [Concomitant]
     Active Substance: ACETAMINOPHEN
     Indication: PYREXIA
     Route: 065
  19. PMS-CLONAZEPAM [Concomitant]
     Active Substance: CLONAZEPAM
     Indication: NEUROPATHY PERIPHERAL
     Dosage: 1 OR 2 TABLETS THRICE DAILY
     Route: 065
  20. CLOTRIMADERM [Concomitant]
     Indication: ANORECTAL DISORDER
     Dosage: APPLY TO AFFECTED AREAS FOUR TIMES DAILY FOR 26 DAYS
     Route: 065
  21. REMICADE [Suspect]
     Active Substance: INFLIXIMAB
     Indication: CROHN^S DISEASE
     Route: 042
     Dates: start: 20141007
  22. CITALOPRAM [Suspect]
     Active Substance: CITALOPRAM HYDROBROMIDE
     Indication: NERVOUS SYSTEM DISORDER
     Route: 065
     Dates: start: 20141010
  23. FENTANYL. [Concomitant]
     Active Substance: FENTANYL
     Indication: PAIN
     Dosage: ROTATE APPLICATION SITES.
     Route: 065
  24. FLOVENT HFA [Concomitant]
     Active Substance: FLUTICASONE PROPIONATE
     Indication: STOMA SITE IRRITATION
     Route: 055
  25. CORTIFOAM AEROSOL [Concomitant]
     Indication: CROHN^S DISEASE
     Dosage: USE RECTALLY EVERY NIGHT AT BEDTIME WHEN REQUIRED AS DIRECTED
     Route: 054
  26. REMICADE [Suspect]
     Active Substance: INFLIXIMAB
     Indication: CROHN^S DISEASE
     Route: 042
     Dates: start: 20140909
  27. CITALOPRAM [Suspect]
     Active Substance: CITALOPRAM HYDROBROMIDE
     Indication: NERVOUS SYSTEM DISORDER
     Dosage: 2 TABLETS ONCE DAILY
     Route: 065
  28. CITALOPRAM [Suspect]
     Active Substance: CITALOPRAM HYDROBROMIDE
     Indication: AFFECTIVE DISORDER
     Route: 065
     Dates: start: 20141010
  29. BENADRYL [Concomitant]
     Active Substance: DIPHENHYDRAMINE HYDROCHLORIDE
     Indication: PREMEDICATION
     Route: 065
     Dates: start: 20150226
  30. TYLENOL [Concomitant]
     Active Substance: ACETAMINOPHEN
     Indication: PREMEDICATION
     Route: 065
     Dates: start: 20150226
  31. RABEPRAZOLE [Concomitant]
     Active Substance: RABEPRAZOLE
     Indication: HYPERCHLORHYDRIA
     Dosage: TAKE 1 TABLET TWICE DAILY 15-30 MINUTES BEFORE MEALS
     Route: 065
  32. PREMARIN VAGINAL [Concomitant]
     Active Substance: ESTROGENS, CONJUGATED
     Indication: VULVOVAGINAL DRYNESS
     Dosage: APPLY 1/2 CREAM APPLICATOR INTO THE VAGINA ONCE A WEEK
     Route: 067
  33. VITAMIN B12 [Concomitant]
     Active Substance: CYANOCOBALAMIN
     Route: 065
  34. MAGNESIUM [Concomitant]
     Active Substance: MAGNESIUM
     Route: 065
  35. VITAMIN D [Concomitant]
     Active Substance: CHOLECALCIFEROL
     Route: 065
  36. REMICADE [Suspect]
     Active Substance: INFLIXIMAB
     Indication: CROHN^S DISEASE
     Route: 042
     Dates: start: 20150226
  37. REMICADE [Suspect]
     Active Substance: INFLIXIMAB
     Indication: COLITIS ULCERATIVE
     Route: 042
     Dates: start: 20150226
  38. INNOHEP [Suspect]
     Active Substance: TINZAPARIN SODIUM
     Indication: THROMBOSIS PROPHYLAXIS
     Dosage: INJECT 1 PRE-FILLED SYRINGEONCE DAILY
     Route: 058
  39. TARO-WARFARIN [Suspect]
     Active Substance: WARFARIN
     Indication: THROMBOSIS PROPHYLAXIS
     Route: 065
     Dates: start: 201409
  40. CITALOPRAM [Suspect]
     Active Substance: CITALOPRAM HYDROBROMIDE
     Indication: NERVOUS SYSTEM DISORDER
     Dosage: WITH FOOD IN MORNING. DOSE INCREASED TO 2 TABLETS DAILY
     Route: 065
  41. CITALOPRAM [Suspect]
     Active Substance: CITALOPRAM HYDROBROMIDE
     Indication: AFFECTIVE DISORDER
     Dosage: 2 TABLETS ONCE DAILY
     Route: 065
  42. TYLENOL [Concomitant]
     Active Substance: ACETAMINOPHEN
     Indication: PAIN
     Route: 065
  43. SOLU-CORTEF [Concomitant]
     Active Substance: HYDROCORTISONE SODIUM SUCCINATE
     Indication: PREMEDICATION
     Route: 065
     Dates: start: 20150226
  44. HYDROMORPHONE [Concomitant]
     Active Substance: HYDROMORPHONE
     Dosage: TAKE 1 OR 2 TABLETS FOUR TIMES DAILY WHEN REQUIRED
     Route: 065
  45. GRAVOL [Concomitant]
     Active Substance: DIMENHYDRINATE
     Indication: NAUSEA
     Dosage: 1 TABLET 4 TIMES A WEEK
     Route: 065

REACTIONS (18)
  - Thrombosis [Unknown]
  - Feeling of body temperature change [Recovering/Resolving]
  - Nausea [Recovering/Resolving]
  - Crohn^s disease [Unknown]
  - Chest pain [Unknown]
  - Infusion related reaction [Recovering/Resolving]
  - Infection [Unknown]
  - Melanocytic naevus [Unknown]
  - Stoma site haemorrhage [Recovered/Resolved]
  - Oropharyngeal pain [Recovering/Resolving]
  - Headache [Recovering/Resolving]
  - Heart rate increased [Recovering/Resolving]
  - Rash [Unknown]
  - Hypoaesthesia [Recovering/Resolving]
  - Decreased activity [Recovering/Resolving]
  - International normalised ratio increased [Recovering/Resolving]
  - White blood cell count increased [Unknown]
  - Tremor [Recovering/Resolving]

NARRATIVE: CASE EVENT DATE: 2014
